FAERS Safety Report 12062663 (Version 1)
Quarter: 2016Q1

REPORT INFORMATION
  Report Type: Spontaneous
  Country: US (occurrence: US)
  Receive Date: 20160210
  Receipt Date: 20160210
  Transmission Date: 20160526
  Serious: No
  Sender: FDA-Public Use
  Company Number: US-ALLERGAN-1309433US

PATIENT
  Sex: Male

DRUGS (2)
  1. BOTOX [Suspect]
     Active Substance: ONABOTULINUMTOXINA
     Dosage: 30 UNITS, SINGLE
     Route: 058
     Dates: start: 20130625, end: 20130625
  2. BOTOX [Suspect]
     Active Substance: ONABOTULINUMTOXINA
     Indication: HYPERHIDROSIS
     Dosage: 30 UNITS, SINGLE
     Route: 058
     Dates: start: 20130625, end: 20130625

REACTIONS (3)
  - Injection site pain [Unknown]
  - Incorrect route of drug administration [Unknown]
  - Product preparation error [Unknown]
